FAERS Safety Report 8844902 (Version 7)
Quarter: 2013Q1

REPORT INFORMATION
  Report Type: Spontaneous
  Country: JP (occurrence: JP)
  Receive Date: 20121017
  Receipt Date: 20130327
  Transmission Date: 20140127
  Serious: Yes (Hospitalization, Other)
  Sender: FDA-Public Use
  Company Number: JP-ABBOTT-12P-087-0994458-00

PATIENT
  Age: 26 None
  Sex: Female
  Weight: 58.2 kg

DRUGS (5)
  1. KLARICID [Suspect]
     Indication: DIFFUSE PANBRONCHIOLITIS
     Dates: start: 2010, end: 201204
  2. ERYTHROCIN [Suspect]
     Indication: PRODUCT USED FOR UNKNOWN INDICATION
     Dates: start: 2012, end: 201204
  3. CLARITHROMYCIN [Suspect]
     Indication: PRODUCT USED FOR UNKNOWN INDICATION
     Dates: start: 2010, end: 201204
  4. LOXOPROFEN SODIUM HYDRATE [Suspect]
     Indication: PRODUCT USED FOR UNKNOWN INDICATION
  5. LOXONIN [Concomitant]

REACTIONS (2)
  - Drug-induced liver injury [Recovered/Resolved]
  - Pulmonary sarcoidosis [Unknown]
